FAERS Safety Report 6958551-1 (Version None)
Quarter: 2010Q3

REPORT INFORMATION
  Report Type: 
  Country: None (occurrence: None)
  Receive Date: 20100831
  Receipt Date: 20100826
  Transmission Date: 20110219
  Serious: Yes (Hospitalization)
  Sender: FDA-Public Use
  Company Number: FR-MERCK-1008FRA00088

PATIENT
  Age: 49 Year
  Sex: Male

DRUGS (10)
  1. ISENTRESS [Suspect]
     Indication: HIV INFECTION
     Route: 048
     Dates: start: 20070212, end: 20100630
  2. ISENTRESS [Suspect]
     Route: 048
     Dates: start: 20100707
  3. EMTRICITABINE AND TENOFOVIR DISOPROXIL FUMARATE [Suspect]
     Indication: HIV INFECTION
     Route: 048
     Dates: start: 20070212, end: 20100630
  4. EMTRICITABINE AND TENOFOVIR DISOPROXIL FUMARATE [Suspect]
     Route: 048
     Dates: start: 20100707
  5. RITONAVIR [Suspect]
     Indication: HIV INFECTION
     Route: 048
     Dates: start: 20000202, end: 20100630
  6. RITONAVIR [Suspect]
     Route: 048
     Dates: start: 20100707
  7. DARUNAVIR [Suspect]
     Indication: HIV INFECTION
     Route: 048
     Dates: start: 20070723, end: 20100630
  8. DARUNAVIR [Suspect]
     Route: 048
     Dates: start: 20100707
  9. METFORMIN [Suspect]
     Indication: TYPE 2 DIABETES MELLITUS
     Route: 048
     Dates: start: 20091002, end: 20100630
  10. METFORMIN [Suspect]
     Route: 048
     Dates: start: 20100707

REACTIONS (1)
  - PANCREATITIS ACUTE [None]
